FAERS Safety Report 9157322 (Version 2)
Quarter: 2013Q2

REPORT INFORMATION
  Report Type: Spontaneous
  Country: GB (occurrence: GB)
  Receive Date: 20130312
  Receipt Date: 20130523
  Transmission Date: 20140414
  Serious: Yes (Life-Threatening, Other)
  Sender: FDA-Public Use
  Company Number: GB-RANBAXY-2013RR-65752

PATIENT
  Age: 24 Year
  Sex: Female
  Weight: 87 kg

DRUGS (14)
  1. CODEINE [Suspect]
     Indication: ANALGESIC THERAPY
     Dosage: 60 MG, UNK
     Route: 048
  2. DIAMORPHINE [Suspect]
     Indication: ANALGESIC THERAPY
     Dosage: 10 MG, UNK
     Route: 030
  3. REMIFENTANIL [Suspect]
     Indication: ANALGESIC THERAPY
     Dosage: 5 DOSES, 40UG, A LOCKOUT PERIOD OF 2 MIN, AND A 4 H LIMIT OF 5MG
     Route: 042
  4. REMIFENTANIL [Suspect]
     Dosage: THREE FURTHER DOSES (120?G) HAD BEEN ADMINISTERED AFTER THE FIRST FIVE DOSES
     Route: 042
  5. MISOPROSTOL [Suspect]
     Indication: LABOUR INDUCTION
     Dosage: 100 ?G, UNK
     Route: 065
  6. MIFEPRISTONE [Concomitant]
     Indication: LABOUR INDUCTION
     Dosage: 200 ?G, UNK
     Route: 048
  7. PARACETAMOL [Concomitant]
     Indication: ANALGESIC THERAPY
     Dosage: 1 G, UNK
     Route: 048
  8. ENTONOX [Concomitant]
     Indication: ANALGESIC THERAPY
     Route: 065
  9. THIOPENTAL [Concomitant]
     Indication: ANAESTHESIA
     Dosage: 125 MG, UNK
     Route: 065
  10. SUXAMETHONIUM [Concomitant]
     Indication: ANAESTHESIA
     Dosage: 100 MG, UNK
     Route: 065
  11. ISOFLURANE [Concomitant]
     Indication: ANAESTHESIA
     Route: 065
  12. MORPHINE [Concomitant]
     Indication: ANAESTHESIA
     Dosage: 10 MG, UNK
     Route: 042
  13. METARAMINOL [Concomitant]
     Indication: PROPHYLAXIS
     Dosage: 500 ?G, BOLUSES
     Route: 065
  14. PROPOFOL [Concomitant]
     Indication: ANAESTHESIA
     Dosage: INFUSION
     Route: 042

REACTIONS (2)
  - Cardio-respiratory arrest [Recovered/Resolved]
  - Electrocardiogram QT prolonged [Recovered/Resolved]
